FAERS Safety Report 9272528 (Version 1)
Quarter: 2013Q2

REPORT INFORMATION
  Report Type: Report from Study
  Country: FR (occurrence: FR)
  Receive Date: 20130506
  Receipt Date: 20130506
  Transmission Date: 20140414
  Serious: Yes (Hospitalization, Other)
  Sender: FDA-Public Use
  Company Number: FR-GLAXOSMITHKLINE-B0836611A

PATIENT
  Age: 9 Year
  Sex: Male
  Weight: 19.2 kg

DRUGS (22)
  1. BECOTIDE [Suspect]
     Indication: PRODUCT USED FOR UNKNOWN INDICATION
     Route: 045
     Dates: start: 20120405, end: 20120427
  2. VINORELBINE TARTRATE [Suspect]
     Indication: RHABDOMYOSARCOMA
     Dosage: 17MG CYCLIC
     Route: 042
     Dates: start: 20110610
  3. BEVACIZUMAB [Suspect]
     Indication: RHABDOMYOSARCOMA
     Route: 042
     Dates: start: 20101103
  4. CYCLOPHOSPHAMIDE [Suspect]
     Indication: SARCOMA
     Dosage: 630MG CYCLIC
     Route: 042
     Dates: start: 20110105
  5. DACTINOMYCIN [Suspect]
     Indication: RHABDOMYOSARCOMA
     Dosage: 1.2MG PER DAY
     Route: 042
     Dates: start: 20101103
  6. IFOSFAMIDE [Suspect]
     Indication: RHABDOMYOSARCOMA
     Dosage: 6GM2 CYCLIC
     Route: 042
     Dates: start: 20101103, end: 20101216
  7. VINCRISTINE [Suspect]
     Indication: RHABDOMYOSARCOMA
     Dosage: 1.3MG PER DAY
     Route: 042
     Dates: start: 20101103
  8. DOXORUBICIN [Suspect]
     Indication: RHABDOMYOSARCOMA
     Dosage: 25MG PER DAY
     Route: 042
     Dates: start: 20101103
  9. BACTRIM [Concomitant]
     Dosage: 800MG THREE TIMES PER WEEK
     Dates: start: 20110722
  10. RIVOTRIL [Concomitant]
     Dates: start: 20120405
  11. AERIUS [Concomitant]
     Dosage: 5MG PER DAY
     Dates: start: 20120327
  12. PROCTOLOG [Concomitant]
  13. MORPHINE [Concomitant]
     Dosage: 24MG PER DAY
     Dates: start: 20101102, end: 20101111
  14. KETAMINE [Concomitant]
  15. LAROXYL [Concomitant]
  16. FLIXOTIDE [Concomitant]
     Dates: start: 20101102
  17. ROCEPHINE [Concomitant]
     Dates: start: 20101223, end: 20110103
  18. DUPHALAC [Concomitant]
     Dosage: 1ML TWICE PER DAY
     Dates: start: 20101106, end: 20101110
  19. ZOPHREN [Concomitant]
     Dosage: 4MG PER DAY
     Dates: start: 20101110, end: 20101110
  20. PLITICAN [Concomitant]
     Dates: start: 20101103
  21. XANAX [Concomitant]
     Dosage: .25MG PER DAY
     Dates: start: 20101106, end: 20101110
  22. NEURONTIN [Concomitant]
     Dosage: 200MG PER DAY
     Dates: start: 20101104, end: 20101112

REACTIONS (6)
  - Epistaxis [Recovered/Resolved]
  - Febrile bone marrow aplasia [Recovered/Resolved]
  - Mucosal inflammation [Recovered/Resolved]
  - Gingival bleeding [Recovered/Resolved]
  - Convulsion [Recovered/Resolved]
  - Epistaxis [Recovered/Resolved]
